FAERS Safety Report 15881295 (Version 6)
Quarter: 2020Q2

REPORT INFORMATION
  Report Type: Report from Study
  Country: US (occurrence: US)
  Receive Date: 20190128
  Receipt Date: 20200605
  Transmission Date: 20200713
  Serious: Yes (Hospitalization)
  Sender: FDA-Public Use
  Company Number: US-ACTELION-A-NJ2016-137187

PATIENT
  Age: 57 Year
  Sex: Female
  Weight: 104.31 kg

DRUGS (9)
  1. AMLODIPINE [Concomitant]
     Active Substance: AMLODIPINE BESYLATE
  2. UPTRAVI [Suspect]
     Active Substance: SELEXIPAG
     Dosage: 200 MCG, BID
     Route: 048
     Dates: start: 20160405
  3. OPSUMIT [Suspect]
     Active Substance: MACITENTAN
     Dosage: 10 MG, QD
     Route: 048
  4. OPSUMIT [Suspect]
     Active Substance: MACITENTAN
     Indication: PULMONARY ARTERIAL HYPERTENSION
     Dosage: 10 MG, QD
     Route: 048
     Dates: start: 20151127
  5. OPSUMIT [Suspect]
     Active Substance: MACITENTAN
     Dosage: 10 MG, QOD
     Route: 048
  6. UPTRAVI [Suspect]
     Active Substance: SELEXIPAG
     Indication: PULMONARY ARTERIAL HYPERTENSION
     Dosage: 400 MCG, BID
     Route: 048
     Dates: start: 20160405
  7. UPTRAVI [Suspect]
     Active Substance: SELEXIPAG
     Dosage: 600 MCG, BID
     Route: 048
  8. ADEMPAS [Suspect]
     Active Substance: RIOCIGUAT
     Indication: PRODUCT USED FOR UNKNOWN INDICATION
     Route: 065
  9. REVATIO [Concomitant]
     Active Substance: SILDENAFIL CITRATE
     Dosage: UNK
     Dates: end: 20170904

REACTIONS (31)
  - Pain in jaw [Not Recovered/Not Resolved]
  - Urinary tract infection [Unknown]
  - Arthralgia [Unknown]
  - Insomnia [Unknown]
  - Fatigue [Unknown]
  - Peripheral swelling [Unknown]
  - Somnolence [Unknown]
  - Pain in extremity [Unknown]
  - Swelling [Unknown]
  - Gout [Unknown]
  - Supraventricular tachycardia [Unknown]
  - Headache [Unknown]
  - Dyspepsia [Unknown]
  - Decreased appetite [Unknown]
  - Joint swelling [Unknown]
  - Anxiety [Unknown]
  - Dizziness [Recovered/Resolved]
  - Bronchitis [Unknown]
  - Muscle spasms [Unknown]
  - Myalgia [Unknown]
  - Product dose omission [Unknown]
  - Disorientation [Unknown]
  - Hypertension [Unknown]
  - Dyspnoea [Unknown]
  - Nausea [Recovered/Resolved]
  - Diarrhoea [Unknown]
  - Pain [Unknown]
  - Malaise [Recovered/Resolved]
  - Abdominal pain [Unknown]
  - Exercise tolerance decreased [Unknown]
  - Gastric disorder [Recovering/Resolving]

NARRATIVE: CASE EVENT DATE: 201604
